FAERS Safety Report 4359523-6 (Version None)
Quarter: 2004Q2

REPORT INFORMATION
  Report Type: 
  Country: None (occurrence: None)
  Receive Date: 20040512
  Receipt Date: 20040422
  Transmission Date: 20050107
  Serious: Yes (Hospitalization, Other)
  Sender: FDA-Public Use
  Company Number: USA040465678

PATIENT
  Age: 76 Year
  Sex: Female
  Weight: 51 kg

DRUGS (5)
  1. ZYPREXA [Suspect]
     Indication: OSTEOPOROSIS
     Dates: start: 20020301, end: 20040201
  2. FORTEO [Suspect]
     Indication: OSTEOPOROSIS
  3. FOSAMAX [Concomitant]
  4. CALCIUM [Concomitant]
  5. CELEXA [Concomitant]

REACTIONS (7)
  - BALANCE DISORDER [None]
  - CONTUSION [None]
  - CONVULSION [None]
  - DRUG HYPERSENSITIVITY [None]
  - FALL [None]
  - HAEMATOMA [None]
  - LOSS OF CONSCIOUSNESS [None]
